FAERS Safety Report 12369992 (Version 2)
Quarter: 2016Q2

REPORT INFORMATION
  Report Type: Spontaneous
  Country: BR (occurrence: BR)
  Receive Date: 20160516
  Receipt Date: 20160523
  Transmission Date: 20160815
  Serious: Yes (Death)
  Sender: FDA-Public Use
  Company Number: BR-MALLINCKRODT-T201601679

PATIENT
  Age: 29 Year
  Sex: Female
  Weight: 55 kg

DRUGS (8)
  1. DIPIRONE [Concomitant]
     Active Substance: METAMIZOLE SODIUM
     Route: 042
  2. OPTIRAY 320 [Suspect]
     Active Substance: IOVERSOL
     Indication: COMPUTERISED TOMOGRAM PELVIS
     Dosage: 80 ML, SINGLE
     Route: 042
     Dates: start: 20160428, end: 20160428
  3. ONDANSETRON [Concomitant]
     Active Substance: ONDANSETRON
     Dosage: 2 ML, SINGLE
     Route: 042
  4. OMEPRAZOLE. [Concomitant]
     Active Substance: OMEPRAZOLE
     Dosage: 40 MG, SINGLE
     Route: 042
  5. SIMETHICONE (DIMETHICONE) [Concomitant]
     Active Substance: DIMETHICONE
     Dosage: 2 ML, SINGLE
     Route: 048
  6. TRANEXAMIC ACID. [Concomitant]
     Active Substance: TRANEXAMIC ACID
     Dosage: 5 ML, SINGLE
     Route: 042
  7. OPTIRAY 320 [Suspect]
     Active Substance: IOVERSOL
     Indication: COMPUTERISED TOMOGRAM ABDOMEN
  8. SCOPOLAMINE                        /00008701/ [Concomitant]
     Active Substance: SCOPOLAMINE
     Route: 042

REACTIONS (3)
  - Cardio-respiratory arrest [Fatal]
  - Shock haemorrhagic [Fatal]
  - Pulmonary haemorrhage [Fatal]

NARRATIVE: CASE EVENT DATE: 20160428
